FAERS Safety Report 18079725 (Version 5)
Quarter: 2022Q3

REPORT INFORMATION
  Report Type: Spontaneous
  Country: CA (occurrence: CA)
  Receive Date: 20200728
  Receipt Date: 20220711
  Transmission Date: 20221026
  Serious: Yes (Hospitalization, Other)
  Sender: FDA-Public Use
  Company Number: CA-GLAXOSMITHKLINE-CA2020AMR140114

PATIENT

DRUGS (4)
  1. ZEJULA [Suspect]
     Active Substance: NIRAPARIB
     Indication: Ovarian epithelial cancer recurrent
     Dosage: 200 MG, QD
     Route: 048
     Dates: start: 20200629, end: 20200718
  2. ZEJULA [Suspect]
     Active Substance: NIRAPARIB
     Indication: Fallopian tube cancer
     Dosage: 200 MG, QD
     Route: 048
     Dates: start: 20200721
  3. ZEJULA [Suspect]
     Active Substance: NIRAPARIB
     Indication: Peritoneal neoplasm
     Dosage: 100 MG, QD
     Dates: start: 20201005
  4. ZEJULA [Suspect]
     Active Substance: NIRAPARIB
     Dosage: 200 MG, QD

REACTIONS (10)
  - Gallbladder disorder [Recovering/Resolving]
  - Cholelithiasis [Unknown]
  - Intestinal obstruction [Unknown]
  - Constipation [Unknown]
  - Biliary tract disorder [Unknown]
  - Cholecystitis [Unknown]
  - Malignant neoplasm progression [Unknown]
  - Gastrooesophageal reflux disease [Not Recovered/Not Resolved]
  - Platelet count decreased [Recovering/Resolving]
  - Haemoglobin decreased [Unknown]
